FAERS Safety Report 4895803-3 (Version None)
Quarter: 2005Q4

REPORT INFORMATION
  Report Type: 
  Country: None (occurrence: None)
  Receive Date: 20051229
  Receipt Date: 20050503
  Transmission Date: 20060501
  Serious: No
  Sender: FDA-Public Use
  Company Number: 1781-156

PATIENT
  Age: 41 Year
  Sex: Female

DRUGS (1)
  1. VENOFER [Suspect]
     Indication: ANAEMIA
     Dates: start: 20040501, end: 20040701

REACTIONS (1)
  - ALOPECIA [None]
